FAERS Safety Report 9485372 (Version 1)
Quarter: 2013Q3

REPORT INFORMATION
  Report Type: Spontaneous
  Country: CA (occurrence: CA)
  Receive Date: 20130828
  Receipt Date: 20130828
  Transmission Date: 20140515
  Serious: No
  Sender: FDA-Public Use
  Company Number: CA-ROCHE-1267296

PATIENT
  Age: 40 Year
  Sex: Female

DRUGS (4)
  1. TAMIFLU [Suspect]
     Indication: PRODUCT USED FOR UNKNOWN INDICATION
     Route: 048
  2. ZOLOFT [Suspect]
     Indication: PRODUCT USED FOR UNKNOWN INDICATION
     Route: 065
  3. GABAPENTIN [Concomitant]
     Route: 065
  4. PARIET [Concomitant]
     Route: 065

REACTIONS (2)
  - Inappropriate schedule of drug administration [Unknown]
  - Tinnitus [Unknown]
